FAERS Safety Report 9128070 (Version 1)
Quarter: 2013Q1

REPORT INFORMATION
  Report Type: Spontaneous
  Country: FR (occurrence: FR)
  Receive Date: 20130228
  Receipt Date: 20130228
  Transmission Date: 20140127
  Serious: Yes (Death, Other)
  Sender: FDA-Public Use
  Company Number: FR-PFIZER INC-2013069558

PATIENT
  Age: 81 Year
  Sex: Female

DRUGS (6)
  1. CORDARONE [Suspect]
     Indication: ATRIAL FIBRILLATION
     Dosage: 200 MG, DAILY
     Route: 048
     Dates: end: 20121013
  2. PRADAXA [Interacting]
     Dosage: 110 MG, 2X/DAY
     Route: 048
     Dates: start: 201208, end: 20121013
  3. PARIET [Concomitant]
     Dosage: UNK
     Dates: end: 20121013
  4. CARDENSIEL [Concomitant]
     Dosage: UNK
     Dates: end: 20121013
  5. ALPRAZOLAM [Concomitant]
     Dosage: UNK
     Dates: end: 20121013
  6. DIFFU K [Concomitant]
     Dosage: UNK
     Dates: end: 20121013

REACTIONS (4)
  - Drug interaction [Fatal]
  - Rectal haemorrhage [Fatal]
  - Haemorrhagic anaemia [Fatal]
  - Renal failure acute [Unknown]
